FAERS Safety Report 6501663-7 (Version None)
Quarter: 2009Q4

REPORT INFORMATION
  Report Type: 
  Country: None (occurrence: None)
  Receive Date: 20091127
  Receipt Date: 20090206
  Transmission Date: 20100525
  Serious: Yes (Hospitalization, Disabling, Other)
  Sender: FDA-Public Use
  Company Number: WAES 0808USA04964

PATIENT
  Age: 63 Year
  Sex: Female

DRUGS (4)
  1. FOSAMAX [Suspect]
     Indication: OSTEOPENIA
     Dosage: 70 MG/PO
     Route: 048
     Dates: start: 20050501, end: 20061001
  2. FOSAMAX [Suspect]
     Indication: OSTEOPOROSIS
     Dosage: 70 MG/PO
     Route: 048
     Dates: start: 20050501, end: 20061001
  3. BONIVA [Suspect]
     Dates: start: 20061001, end: 20061201
  4. BONIVA [Suspect]
     Dates: start: 20070212, end: 20070308

REACTIONS (11)
  - ACNE [None]
  - DEPRESSION [None]
  - DIABETES MELLITUS [None]
  - INFECTED SEBACEOUS CYST [None]
  - NAIL PSORIASIS [None]
  - NASAL CONGESTION [None]
  - OSTEOMYELITIS [None]
  - OSTEONECROSIS [None]
  - PNEUMONIA VIRAL [None]
  - UPPER LIMB FRACTURE [None]
  - UPPER RESPIRATORY TRACT INFECTION [None]
